FAERS Safety Report 14794845 (Version 2)
Quarter: 2018Q2

REPORT INFORMATION
  Report Type: Spontaneous
  Country: JP (occurrence: JP)
  Receive Date: 20180423
  Receipt Date: 20180625
  Transmission Date: 20180711
  Serious: Yes (Hospitalization, Other)
  Sender: FDA-Public Use
  Company Number: JP-009507513-1804JPN002259J

PATIENT
  Age: 65 Year
  Sex: Female

DRUGS (2)
  1. RIMATIL [Concomitant]
     Active Substance: BUCILLAMINE
     Route: 048
  2. FOSAMAC TABLETS 35MG [Suspect]
     Active Substance: ALENDRONATE SODIUM
     Dosage: UNK
     Route: 048
     Dates: start: 2012

REACTIONS (1)
  - Sinusitis [Recovering/Resolving]
